FAERS Safety Report 25053624 (Version 2)
Quarter: 2025Q2

REPORT INFORMATION
  Report Type: Spontaneous
  Country: US (occurrence: US)
  Receive Date: 20250307
  Receipt Date: 20250407
  Transmission Date: 20250716
  Serious: No
  Sender: SANOFI AVENTIS
  Company Number: US-SA-2025SA067468

PATIENT
  Age: 20 Year
  Sex: Female

DRUGS (21)
  1. DUPIXENT [Suspect]
     Active Substance: DUPILUMAB
     Indication: Dermatitis atopic
     Dosage: 300 MG, QOW
     Route: 058
     Dates: start: 20240420
  2. ACCOLATE [Concomitant]
     Active Substance: ZAFIRLUKAST
  3. ALBUTEROL SULFATE [Concomitant]
     Active Substance: ALBUTEROL SULFATE
  4. ATOMOXETINE [Concomitant]
     Active Substance: ATOMOXETINE
  5. BUSPIRONE [Concomitant]
     Active Substance: BUSPIRONE HYDROCHLORIDE
  6. BUSPIRONE [Concomitant]
     Active Substance: BUSPIRONE HYDROCHLORIDE
  7. BUTRANS [Concomitant]
     Active Substance: BUPRENORPHINE
  8. CELECOXIB [Concomitant]
     Active Substance: CELECOXIB
  9. CITALOPRAM [Concomitant]
     Active Substance: CITALOPRAM
  10. CITALOPRAM [Concomitant]
     Active Substance: CITALOPRAM
  11. DICLOFENAC [Concomitant]
     Active Substance: DICLOFENAC
  12. DULOXETINE [Concomitant]
     Active Substance: DULOXETINE
  13. DULOXETINE [Concomitant]
     Active Substance: DULOXETINE
  14. DULOXETINE [Concomitant]
     Active Substance: DULOXETINE
  15. FAMOTIDINE [Concomitant]
     Active Substance: FAMOTIDINE
  16. FLUTICASONE [Concomitant]
     Active Substance: FLUTICASONE
  17. LEVOCETIRIZINE [Concomitant]
     Active Substance: LEVOCETIRIZINE
  18. METHYLPREDNISOLONE [Concomitant]
     Active Substance: METHYLPREDNISOLONE
  19. OPZELURA [Concomitant]
     Active Substance: RUXOLITINIB PHOSPHATE
  20. VYVANSE [Concomitant]
     Active Substance: LISDEXAMFETAMINE DIMESYLATE
  21. ZAFIRLUKAST [Concomitant]
     Active Substance: ZAFIRLUKAST

REACTIONS (3)
  - Sleep disorder due to a general medical condition [Unknown]
  - Drug ineffective [Unknown]
  - Product dose omission in error [Unknown]

NARRATIVE: CASE EVENT DATE: 20250201
